FAERS Safety Report 15600486 (Version 2)
Quarter: 2020Q2

REPORT INFORMATION
  Report Type: Report from Study
  Country: NL (occurrence: NL)
  Receive Date: 20181109
  Receipt Date: 20200515
  Transmission Date: 20200713
  Serious: Yes (Life-Threatening, Disabling)
  Sender: FDA-Public Use
  Company Number: NL-ACCORD-091296

PATIENT
  Age: 57 Year
  Sex: Female

DRUGS (2)
  1. FOLIUMZUUR [Concomitant]
     Active Substance: FOLIC ACID
     Dosage: 5MG, 1X/W
     Dates: start: 20010315, end: 20180209
  2. METHOTREXATE. [Suspect]
     Active Substance: METHOTREXATE
     Indication: RHEUMATOID ARTHRITIS
     Dosage: 15MG, 1X/W
     Dates: start: 20010315, end: 20180209

REACTIONS (1)
  - Lung neoplasm malignant [Unknown]

NARRATIVE: CASE EVENT DATE: 20180209
